FAERS Safety Report 8286272-4 (Version None)
Quarter: 2012Q1

REPORT INFORMATION
  Report Type: 
  Country: None (occurrence: None)
  Receive Date: 20120314
  Receipt Date: 20100917
  Transmission Date: 20120608
  Serious: No
  Sender: FDA-Public Use
  Company Number: PHHY2010US62056

PATIENT
  Age: 18 Year
  Sex: Female
  Weight: 74.8 kg

DRUGS (8)
  1. ADDERALL 10 [Concomitant]
  2. SAPHRIS [Concomitant]
  3. TRAZODONE HCL [Concomitant]
  4. XANAX [Concomitant]
  5. INVEGA [Concomitant]
  6. ABILIFY [Concomitant]
  7. FANAPT [Suspect]
     Indication: DEPRESSION
     Dosage: 6 MG, BID, ORAL
     Route: 048
     Dates: start: 20100713, end: 20100907
  8. FANAPT [Suspect]
     Indication: BIPOLAR I DISORDER
     Dosage: 6 MG, BID, ORAL
     Route: 048
     Dates: start: 20100713, end: 20100907

REACTIONS (1)
  - LACTATION DISORDER [None]
